FAERS Safety Report 7263694-1 (Version None)
Quarter: 2011Q1

REPORT INFORMATION
  Report Type: 
  Country: None (occurrence: None)
  Receive Date: 20110130
  Receipt Date: 20101206
  Transmission Date: 20110831
  Serious: No
  Sender: FDA-Public Use
  Company Number: US-ABBOTT-10P-163-0689748-00

PATIENT
  Age: 76 Year
  Sex: Female

DRUGS (7)
  1. VITAMIN D [Concomitant]
     Indication: PRODUCT USED FOR UNKNOWN INDICATION
     Route: 048
  2. ZOMETA [Concomitant]
     Indication: OSTEITIS DEFORMANS
  3. LASIX [Concomitant]
     Indication: OEDEMA PERIPHERAL
     Route: 048
  4. ZOMETA [Concomitant]
     Indication: OSTEOPOROSIS
  5. OMEPRAZOLE [Concomitant]
     Indication: GASTRIC PH DECREASED
     Route: 048
  6. PREDNISONE [Concomitant]
     Indication: CROHN'S DISEASE
     Route: 048
  7. HUMIRA [Suspect]
     Indication: CROHN'S DISEASE
     Dates: start: 20101008, end: 20101125

REACTIONS (2)
  - GASTROENTERITIS VIRAL [None]
  - NAUSEA [None]
